FAERS Safety Report 10242174 (Version 1)
Quarter: 2014Q2

REPORT INFORMATION
  Report Type: Spontaneous
  Country: IT (occurrence: IT)
  Receive Date: 20140617
  Receipt Date: 20140617
  Transmission Date: 20141212
  Serious: Yes (Hospitalization)
  Sender: FDA-Public Use
  Company Number: IT-WATSON-2014-12724

PATIENT
  Age: 49 Year
  Sex: Female

DRUGS (1)
  1. ZOLPIDEM (UNKNOWN) [Suspect]
     Indication: PANIC ATTACK
     Dosage: 600 MG, DAILY
     Route: 048
     Dates: start: 20091220, end: 20121220

REACTIONS (1)
  - Drug dependence [Recovering/Resolving]
